FAERS Safety Report 8521775-6 (Version None)
Quarter: 2012Q3

REPORT INFORMATION
  Report Type: 
  Country: None (occurrence: None)
  Receive Date: 20120719
  Receipt Date: 20120716
  Transmission Date: 20120928
  Serious: Yes (Other)
  Sender: FDA-Public Use
  Company Number: US-009507513-1201USA01727

PATIENT

DRUGS (6)
  1. ALENDRONATE SODIUM [Suspect]
     Dates: start: 20081001, end: 20090501
  2. ALENDRONATE SODIUM [Suspect]
     Dates: start: 20090901, end: 20091201
  3. FOSAMAX [Suspect]
     Dosage: UNK
     Route: 048
     Dates: start: 20020101, end: 20080401
  4. FOSAMAX [Suspect]
     Route: 048
     Dates: start: 20080501, end: 20080801
  5. FOSAMAX [Suspect]
     Route: 048
     Dates: start: 20090501, end: 20090901
  6. ALENDRONATE SODIUM [Suspect]
     Dates: start: 20091201, end: 20101201

REACTIONS (5)
  - STRESS FRACTURE [None]
  - FEMUR FRACTURE [None]
  - BLOOD CHOLESTEROL INCREASED [None]
  - LOW TURNOVER OSTEOPATHY [None]
  - HYPERTENSION [None]
